FAERS Safety Report 16625094 (Version 1)
Quarter: 2019Q3

REPORT INFORMATION
  Report Type: Spontaneous
  Country: US (occurrence: US)
  Receive Date: 20190611
  Receipt Date: 20190611
  Transmission Date: 20191004
  Serious: Yes (Hospitalization, Other)
  Sender: FDA-Public Use
  Company Number: None

PATIENT
  Age: 63 Year
  Sex: Male

DRUGS (15)
  1. SYMBICORT [Concomitant]
     Active Substance: BUDESONIDE\FORMOTEROL FUMARATE DIHYDRATE
  2. SLO MAG [Concomitant]
  3. REPATHA [Suspect]
     Active Substance: EVOLOCUMAB
     Route: 058
     Dates: start: 20190124
  4. ZOLPIDEM [Concomitant]
     Active Substance: ZOLPIDEM TARTRATE
  5. ALPRAZOLAM. [Concomitant]
     Active Substance: ALPRAZOLAM
  6. SINGULAIR [Concomitant]
     Active Substance: MONTELUKAST SODIUM
  7. LINZESS [Concomitant]
     Active Substance: LINACLOTIDE
  8. ASPIRIN. [Concomitant]
     Active Substance: ASPIRIN
  9. ALBUTEROL. [Concomitant]
     Active Substance: ALBUTEROL
  10. TAMSULOSIN [Concomitant]
     Active Substance: TAMSULOSIN
  11. ELIQUIS [Concomitant]
     Active Substance: APIXABAN
  12. OMEPRAZOLE. [Concomitant]
     Active Substance: OMEPRAZOLE
  13. CLOPIDOGREL [Concomitant]
     Active Substance: CLOPIDOGREL BISULFATE
  14. FINASTERIDE. [Concomitant]
     Active Substance: FINASTERIDE
  15. SOTALOL. [Concomitant]
     Active Substance: SOTALOL

REACTIONS (2)
  - Cerebrovascular accident [None]
  - Therapy cessation [None]

NARRATIVE: CASE EVENT DATE: 201902
